FAERS Safety Report 6259242-5 (Version None)
Quarter: 2009Q3

REPORT INFORMATION
  Report Type: 
  Country: None (occurrence: None)
  Receive Date: 20090702
  Receipt Date: 20090619
  Transmission Date: 20100115
  Serious: Yes (Hospitalization, Other)
  Sender: FDA-Public Use
  Company Number: ADE# 09-255DPR

PATIENT
  Age: 69 Year
  Sex: Female

DRUGS (3)
  1. DIGOXIN [Suspect]
     Indication: HEART RATE IRREGULAR
     Dosage: ONE TABLET DAILY; FOR 6-9 MONTHS
  2. TRIAMTERENE [Concomitant]
  3. WARFARIN [Concomitant]

REACTIONS (3)
  - BLOOD PRESSURE INCREASED [None]
  - DIZZINESS [None]
  - PALPITATIONS [None]
